FAERS Safety Report 21664729 (Version 1)
Quarter: 2022Q4

REPORT INFORMATION
  Report Type: Spontaneous
  Country: CH (occurrence: CH)
  Receive Date: 20221130
  Receipt Date: 20221130
  Transmission Date: 20230113
  Serious: Yes (Hospitalization)
  Sender: FDA-Public Use
  Company Number: None

PATIENT
  Age: 61 Year
  Sex: Male

DRUGS (20)
  1. IBUPROFEN [Interacting]
     Active Substance: IBUPROFEN
     Indication: Product used for unknown indication
     Dosage: 1 DOSAGE FORM (IBUPROFEN ORALLY FOR MONTHS, PRESUMABLY STOPPED ON HOSPITAL ADMISSION)
     Route: 048
     Dates: end: 20220525
  2. DAPAGLIFLOZIN [Interacting]
     Active Substance: DAPAGLIFLOZIN
     Indication: Type 2 diabetes mellitus
     Dosage: 10 MILLIGRAM, QD (10 MG ORALLY 0-0-1 SINCE UNKNOWN)
     Route: 048
     Dates: end: 20220524
  3. DAPAGLIFLOZIN [Interacting]
     Active Substance: DAPAGLIFLOZIN
     Dosage: 10 MILLIGRAM, QD (10 MG ORALLY 0-0-1 SINCE UNKNOWN)
     Route: 048
     Dates: start: 20220614
  4. ROCEPHIN [Interacting]
     Active Substance: CEFTRIAXONE SODIUM
     Indication: Prostatitis
     Dosage: 1 DOSAGE FORM (28-05-2022 - 30-05-2022, NO MORE DETAILED)
     Route: 065
     Dates: start: 20220528, end: 20220530
  5. MEROPENEM [Interacting]
     Active Substance: MEROPENEM
     Indication: Evidence based treatment
     Dosage: 1 GRAM, QD (31-05-2022 - 01-06-2022, 3X1 G/DAY, NO MORE DETAILED)
     Route: 065
     Dates: start: 20220531, end: 20220601
  6. ENOXAPARIN SODIUM [Interacting]
     Active Substance: ENOXAPARIN SODIUM
     Indication: Thrombosis
     Dosage: 1 DOSAGE FORM (SUBCUTANEOUS ADMINISTRATION FROM 27-06-2022 UNTIL 06-06-2022 FOR CENTRAL)
     Route: 058
     Dates: start: 20220527, end: 20220606
  7. ASPIRIN [Interacting]
     Active Substance: ASPIRIN
     Indication: Cerebral infarction
     Dosage: 1 DOSAGE FORM (ORALLY FROM 31-05- 2022 UNTIL 06-06-2022 FOR SUBACUTE)
     Route: 048
     Dates: start: 20220531, end: 20220606
  8. JANUMET [Concomitant]
     Active Substance: METFORMIN HYDROCHLORIDE\SITAGLIPTIN PHOSPHATE
     Dosage: UNK, QD (50/1 000 MG ORALLY SINCE UNKNOWN TIMEPOINT UNTIL 24)
     Route: 048
     Dates: end: 20220524
  9. JANUMET [Concomitant]
     Active Substance: METFORMIN HYDROCHLORIDE\SITAGLIPTIN PHOSPHATE
     Dosage: UNK, QD (50/1 000 MG ORALLY SINCE UNKNOWN TIMEPOINT UNTIL 24)
     Route: 048
     Dates: start: 20220627
  10. PREGABALIN [Concomitant]
     Active Substance: PREGABALIN
     Dosage: 50 MILLIGRAM, QD (PREGABALIN 50 0-0-0 1, STOPPED ON HOSPITAL ADMISSION)
     Route: 048
     Dates: end: 20220525
  11. EZETIMIBE [Concomitant]
     Active Substance: EZETIMIBE
     Dosage: 10 MILLIGRAM, QD (10 MG 0-0-1, PAUSED ON HOSPITAL ADMISSION, RESTARTED 20.06.2022)
     Route: 048
     Dates: end: 20220525
  12. EZETIMIBE [Concomitant]
     Active Substance: EZETIMIBE
     Dosage: 10 MILLIGRAM, QD (10 MG 0-0-1, PAUSED ON HOSPITAL ADMISSION, RESTARTED 20.06.2022)
     Route: 048
     Dates: start: 20220620
  13. Votum [Concomitant]
     Dosage: 40 MILLIGRAM, QD (40 MG 1-0-0, PAUSED ON HOSPITAL ADMISSION UNTIL FURTHER NOTICE)
     Route: 048
     Dates: end: 20220525
  14. AMLODIPINE BESYLATE [Concomitant]
     Active Substance: AMLODIPINE BESYLATE
     Dosage: 10 MILLIGRAM, QD (10 MG 1-0-0 PAUSED ON HOSPITAL ADMISSION, RESTARTED 22-06-2022)
     Route: 048
     Dates: end: 20220525
  15. AMLODIPINE BESYLATE [Concomitant]
     Active Substance: AMLODIPINE BESYLATE
     Dosage: 10 MILLIGRAM, QD (10 MG 1-0-0 PAUSED ON HOSPITAL ADMISSION, RESTARTED 22-06-2022)
     Route: 048
     Dates: start: 20220522
  16. LEVEMIR [Concomitant]
     Active Substance: INSULIN DETEMIR
     Dosage: 1 DOSAGE FORM QD (SUBCUTANEOUS ADMINISTRATION, ADJUSTMENT ACCORDING TO BLOOD GLUCOSE)
     Route: 058
  17. MAGNESIUM ASPARTATE HYDROCHLORIDE [Concomitant]
     Active Substance: MAGNESIUM ASPARTATE HYDROCHLORIDE
     Dosage: 10 MILLIMOLE, QD( 10 MMOL 0-0-1, PAUSED ON HOSPITAL ADMISSION, RESTARTED 20-06-2022)
     Route: 048
     Dates: end: 20220525
  18. MAGNESIUM ASPARTATE HYDROCHLORIDE [Concomitant]
     Active Substance: MAGNESIUM ASPARTATE HYDROCHLORIDE
     Dosage: 10 MILLIMOLE, QD( 10 MMOL 0-0-1, PAUSED ON HOSPITAL ADMISSION, RESTARTED 20-06-2022)
     Route: 048
     Dates: start: 20220620
  19. METOPROLOL [Concomitant]
     Active Substance: METOPROLOL
     Dosage: 50 MILLIGRAM, QD (50 MG 1-0-0 UNTIL FURTHER NOTICE)
     Route: 048
  20. VITAMIN D [Concomitant]
     Active Substance: VITAMIN D NOS
     Dosage: 1 DOSAGE FORM, QW (ONE PIPETTE PER WEEK, PAUSED ON HOSPITAL ADMISSION, PRESUMABLY RESTARTED)
     Route: 048
     Dates: start: 20220525

REACTIONS (8)
  - Hyponatraemia [Recovered/Resolved]
  - Hypovolaemia [Recovered/Resolved]
  - Hypoosmolar state [Recovered/Resolved]
  - Ulcer [Recovering/Resolving]
  - Anaemia [Recovering/Resolving]
  - Drug interaction [Recovering/Resolving]
  - Drug hypersensitivity [Recovered/Resolved]
  - Upper gastrointestinal haemorrhage [Recovering/Resolving]

NARRATIVE: CASE EVENT DATE: 20220525
